FAERS Safety Report 18248404 (Version 1)
Quarter: 2020Q3

REPORT INFORMATION
  Report Type: Report from Study
  Country: US (occurrence: US)
  Receive Date: 20200909
  Receipt Date: 20200909
  Transmission Date: 20201103
  Serious: Yes (Hospitalization)
  Sender: FDA-Public Use
  Company Number: US-JNJFOC-A-NJ2018-184152

PATIENT
  Age: 58 Year
  Sex: Female
  Weight: 122.45 kg

DRUGS (5)
  1. OPSUMIT [Suspect]
     Active Substance: MACITENTAN
     Indication: PULMONARY ARTERIAL HYPERTENSION
     Dosage: 10 MG, QD
     Route: 048
  2. REMODULIN [Suspect]
     Active Substance: TREPROSTINIL
     Indication: PRODUCT USED FOR UNKNOWN INDICATION
     Route: 058
  3. ADCIRCA [Concomitant]
     Active Substance: TADALAFIL
  4. TADALAFIL. [Concomitant]
     Active Substance: TADALAFIL
  5. XARELTO [Concomitant]
     Active Substance: RIVAROXABAN

REACTIONS (19)
  - Respiratory failure [Unknown]
  - Headache [Not Recovered/Not Resolved]
  - Atrial fibrillation [Unknown]
  - Underdose [Unknown]
  - Hospitalisation [Unknown]
  - Heart rate irregular [Unknown]
  - Unevaluable event [Unknown]
  - Infusion site infection [Unknown]
  - Rheumatoid arthritis [Unknown]
  - Device infusion issue [Unknown]
  - Fluid retention [Unknown]
  - Device dislocation [Not Recovered/Not Resolved]
  - Pleural effusion [Unknown]
  - Nasal congestion [Unknown]
  - Malaise [Unknown]
  - Infusion site swelling [Not Recovered/Not Resolved]
  - Therapy change [Unknown]
  - Dyspnoea [Unknown]
  - Diarrhoea [Not Recovered/Not Resolved]

NARRATIVE: CASE EVENT DATE: 20190909
